FAERS Safety Report 20711269 (Version 2)
Quarter: 2022Q3

REPORT INFORMATION
  Report Type: Spontaneous
  Country: US (occurrence: US)
  Receive Date: 20220414
  Receipt Date: 20220713
  Transmission Date: 20221027
  Serious: No
  Sender: FDA-Public Use
  Company Number: US-MYOVANT SCIENCES GMBH-2022MYSCI0300323

PATIENT
  Sex: Male

DRUGS (1)
  1. ORGOVYX [Suspect]
     Active Substance: RELUGOLIX
     Indication: Prostate cancer
     Dosage: UNK
     Route: 065

REACTIONS (14)
  - Dry mouth [Unknown]
  - Dry throat [Unknown]
  - Cough [Unknown]
  - Pain of skin [Unknown]
  - Balance disorder [Unknown]
  - Confusional state [Unknown]
  - Anal incontinence [Unknown]
  - Night sweats [Unknown]
  - Hot flush [Unknown]
  - Fatigue [Unknown]
  - Asthenia [Unknown]
  - Urinary incontinence [Unknown]
  - Micturition urgency [Unknown]
  - Dysuria [Unknown]
